FAERS Safety Report 25331014 (Version 1)
Quarter: 2025Q2

REPORT INFORMATION
  Report Type: Spontaneous
  Country: US (occurrence: None)
  Receive Date: 20250516
  Receipt Date: 20250516
  Transmission Date: 20250717
  Serious: Yes (Hospitalization, Other)
  Sender: FDA-CTU
  Company Number: None

PATIENT
  Sex: Male
  Weight: 74.25 kg

DRUGS (4)
  1. FINASTERIDE\MINOXIDIL [Suspect]
     Active Substance: FINASTERIDE\MINOXIDIL
     Indication: Alopecia
  2. FINASTERIDE\MINOXIDIL [Suspect]
     Active Substance: FINASTERIDE\MINOXIDIL
     Indication: Prophylaxis
  3. DEPAKOTE [Concomitant]
     Active Substance: DIVALPROEX SODIUM
  4. VITAMIN C [Concomitant]
     Active Substance: ASCORBIC ACID

REACTIONS (4)
  - Suicidal ideation [None]
  - Erectile dysfunction [None]
  - Fear [None]
  - Panic attack [None]
